FAERS Safety Report 6686337-4 (Version None)
Quarter: 2010Q2

REPORT INFORMATION
  Report Type: 
  Country: None (occurrence: None)
  Receive Date: 20100414
  Receipt Date: 20100331
  Transmission Date: 20101027
  Serious: Yes (Hospitalization)
  Sender: FDA-Public Use
  Company Number: 7000121

PATIENT
  Age: 43 Year
  Sex: Female

DRUGS (6)
  1. REBIF [Suspect]
     Indication: SECONDARY PROGRESSIVE MULTIPLE SCLEROSIS
     Dosage: 44 MCG, 3 IN 1 WK
     Dates: start: 20020419, end: 20091201
  2. PREDNISONE TAB [Concomitant]
  3. LEVOTHYROXINE SODIUM [Concomitant]
  4. SIMVASTATINE (ALL OTHER THERAPEUTIC PRODUCTS) [Concomitant]
  5. CARDEVILOL (CARVEDILOL) [Concomitant]
  6. LOSARTAN (LOSARTAN) [Concomitant]

REACTIONS (3)
  - BLOOD PRESSURE INCREASED [None]
  - DYSPNOEA [None]
  - RENAL DISORDER [None]
